FAERS Safety Report 20349827 (Version 1)
Quarter: 2022Q1

REPORT INFORMATION
  Report Type: Spontaneous
  Country: US (occurrence: None)
  Receive Date: 20220118
  Receipt Date: 20220118
  Transmission Date: 20220423
  Serious: Yes (Hospitalization)
  Sender: FDA-Public Use
  Company Number: None

PATIENT
  Age: 40 Year
  Sex: Male

DRUGS (1)
  1. AMBRISENTAN [Suspect]
     Active Substance: AMBRISENTAN
     Indication: Pulmonary hypertension
     Dosage: 5MG DAILY ORAL?
     Route: 048
     Dates: start: 20211207

REACTIONS (2)
  - Gastrointestinal disorder [None]
  - Fluid retention [None]

NARRATIVE: CASE EVENT DATE: 20211208
